FAERS Safety Report 4378809-2 (Version None)
Quarter: 2004Q2

REPORT INFORMATION
  Report Type: 
  Country: None (occurrence: None)
  Receive Date: 20040610
  Receipt Date: 20040518
  Transmission Date: 20050107
  Serious: Yes (Other)
  Sender: FDA-Public Use
  Company Number: 2004036181

PATIENT
  Sex: Male

DRUGS (4)
  1. PHENYTOIN SODIUM [Suspect]
     Indication: CONVULSION
     Dosage: 300 MG (1 IN 1 D), ORAL
     Route: 048
     Dates: start: 20030301
  2. ATENOLOL [Concomitant]
  3. ATORVASTATIN (ATORVASTATIN) [Concomitant]
  4. ALL OTHER THERAPEUTIC PRODUCTS (ALL OTHER THERAPEUTIC PRODUCTS) [Concomitant]

REACTIONS (2)
  - CONVULSION [None]
  - DRUG LEVEL DECREASED [None]
